FAERS Safety Report 10165580 (Version 1)
Quarter: 2014Q2

REPORT INFORMATION
  Report Type: Spontaneous
  Country: US (occurrence: US)
  Receive Date: 20140510
  Receipt Date: 20140510
  Transmission Date: 20141212
  Serious: No
  Sender: FDA-Public Use
  Company Number: US-BRISTOL-MYERS SQUIBB COMPANY-20553772

PATIENT
  Age: 88 Year
  Sex: Male

DRUGS (9)
  1. BYDUREON [Suspect]
     Dates: start: 2014
  2. AMIODARONE [Concomitant]
  3. BABY ASPIRIN [Concomitant]
  4. DILTIAZEM HCL [Concomitant]
  5. IRON [Concomitant]
  6. MULTIVITAMIN [Concomitant]
  7. SIMVASTATIN [Concomitant]
  8. VITAMIN C [Concomitant]
  9. VITAMIN E [Concomitant]

REACTIONS (1)
  - Injection site nodule [Unknown]
